FAERS Safety Report 20171564 (Version 1)
Quarter: 2021Q4

REPORT INFORMATION
  Report Type: Spontaneous
  Country: CN (occurrence: CN)
  Receive Date: 20211210
  Receipt Date: 20211210
  Transmission Date: 20220303
  Serious: Yes (Hospitalization, Other)
  Sender: FDA-Public Use
  Company Number: CN-PFIZER INC-202101706716

PATIENT
  Age: 8 Year
  Sex: Female

DRUGS (3)
  1. METHOTREXATE [Suspect]
     Active Substance: METHOTREXATE
     Indication: Chemotherapy
     Dosage: 45 ML, 1X/DAY
     Route: 041
     Dates: start: 20211111, end: 20211112
  2. SODIUM CHLORIDE [Concomitant]
     Active Substance: SODIUM CHLORIDE
     Indication: Vehicle solution use
     Dosage: 50 ML, 1X/DAY
     Route: 041
     Dates: start: 20211111, end: 20211112
  3. SODIUM CHLORIDE [Concomitant]
     Active Substance: SODIUM CHLORIDE
     Dosage: 500 ML, 1X/DAY
     Route: 041
     Dates: start: 20211111, end: 20211112

REACTIONS (6)
  - Platelet count decreased [Recovering/Resolving]
  - Lip haemorrhage [Recovering/Resolving]
  - Haemorrhage [Recovering/Resolving]
  - Cystitis haemorrhagic [Recovering/Resolving]
  - Urinary occult blood [Recovering/Resolving]
  - Red blood cells urine positive [Recovering/Resolving]

NARRATIVE: CASE EVENT DATE: 20211118
